FAERS Safety Report 13176533 (Version 4)
Quarter: 2017Q4

REPORT INFORMATION
  Report Type: Report from Study
  Country: US (occurrence: US)
  Receive Date: 20170201
  Receipt Date: 20171220
  Transmission Date: 20180320
  Serious: Yes (Death, Hospitalization)
  Sender: FDA-Public Use
  Company Number: US-ACTELION-A-NJ2017-149321

PATIENT
  Age: 53 Year
  Sex: Female
  Weight: 73.16 kg

DRUGS (2)
  1. WARFARIN SODIUM. [Concomitant]
     Active Substance: WARFARIN SODIUM
  2. TRACLEER [Suspect]
     Active Substance: BOSENTAN
     Indication: PULMONARY ARTERIAL HYPERTENSION
     Dosage: 125 MG, BID
     Route: 048
     Dates: start: 20110419, end: 20171104

REACTIONS (5)
  - Myocardial infarction [Recovering/Resolving]
  - Pulmonary hypertension [Unknown]
  - Cardiac arrest [Fatal]
  - Acute respiratory failure [Unknown]
  - Chronic obstructive pulmonary disease [Unknown]

NARRATIVE: CASE EVENT DATE: 20170117
